FAERS Safety Report 7647058-4 (Version None)
Quarter: 2011Q3

REPORT INFORMATION
  Report Type: 
  Country: None (occurrence: None)
  Receive Date: 20110801
  Receipt Date: 20110728
  Transmission Date: 20111222
  Serious: Yes (Death)
  Sender: FDA-Public Use
  Company Number: FR-PFIZER INC-2011171671

PATIENT
  Age: 5 Month
  Sex: Female

DRUGS (10)
  1. ALBUMINE ^LFB^ [Suspect]
     Dosage: UNK
     Route: 042
     Dates: start: 20110531
  2. SUFENTANIL [Suspect]
     Dosage: UNK
     Dates: start: 20110622, end: 20110622
  3. ALDACTONE [Suspect]
     Dosage: UNK
     Dates: start: 20110531
  4. PROPRANOLOL [Suspect]
     Indication: HAEMANGIOMA OF SKIN
     Dosage: 3 MG, 2X/DAY
     Route: 048
     Dates: start: 20110609, end: 20110616
  5. PROPRANOLOL [Suspect]
     Dosage: 6 MG, 2X/DAY
     Route: 048
     Dates: start: 20110616, end: 20110622
  6. SANDOSTATIN [Suspect]
     Dosage: UNK
     Dates: start: 20110622, end: 20110622
  7. DIPRIVAN [Suspect]
     Dosage: 30 MG, UNK
     Dates: start: 20110622, end: 20110622
  8. SUCCINYLCHOLINE CHLORIDE [Suspect]
     Dosage: 30 MG, UNK
     Dates: start: 20110622, end: 20110622
  9. AETOXISCLEROL [Suspect]
     Indication: VARICES OESOPHAGEAL
     Dosage: UNK
     Route: 042
     Dates: start: 20110622, end: 20110622
  10. SEVOFLURANE [Suspect]
     Dosage: UNK
     Dates: start: 20110622, end: 20110622

REACTIONS (2)
  - CARDIAC ARREST [None]
  - ATRIOVENTRICULAR BLOCK [None]
